FAERS Safety Report 16181468 (Version 2)
Quarter: 2020Q3

REPORT INFORMATION
  Report Type: Report from Study
  Country: DE (occurrence: DE)
  Receive Date: 20190410
  Receipt Date: 20191009
  Transmission Date: 20201105
  Serious: Yes (Hospitalization, Disabling)
  Sender: FDA-Public Use
  Company Number: DE-ASTRAZENECA-2018SF67646

PATIENT
  Age: 25185 Day
  Sex: Female
  Weight: 50.9 kg

DRUGS (10)
  1. CLEXANE [Concomitant]
     Active Substance: ENOXAPARIN SODIUM
     Indication: THROMBOSIS PROPHYLAXIS
     Route: 065
     Dates: start: 20181117
  2. GEMCITABINE. [Suspect]
     Active Substance: GEMCITABINE
     Indication: GALLBLADDER CANCER
     Route: 042
     Dates: start: 20190107
  3. DURVALUMAB. [Suspect]
     Active Substance: DURVALUMAB
     Indication: GALLBLADDER CANCER
     Route: 042
     Dates: start: 20181128, end: 20181219
  4. GEMCITABINE. [Suspect]
     Active Substance: GEMCITABINE
     Indication: GALLBLADDER CANCER
     Route: 042
     Dates: start: 20181128, end: 20181206
  5. DURVALUMAB. [Suspect]
     Active Substance: DURVALUMAB
     Indication: GALLBLADDER CANCER
     Route: 042
     Dates: start: 20190129
  6. TREMELIMUMAB. [Suspect]
     Active Substance: TREMELIMUMAB
     Indication: GALLBLADDER CANCER
     Route: 042
     Dates: start: 20181128, end: 20181219
  7. CISPLATIN. [Suspect]
     Active Substance: CISPLATIN
     Indication: GALLBLADDER CANCER
     Route: 042
     Dates: start: 20181128, end: 20181206
  8. CISPLATIN. [Suspect]
     Active Substance: CISPLATIN
     Indication: GALLBLADDER CANCER
     Route: 042
     Dates: start: 20190107
  9. TREMELIMUMAB. [Suspect]
     Active Substance: TREMELIMUMAB
     Indication: GALLBLADDER CANCER
     Route: 042
     Dates: end: 20190129
  10. PANTOZOL [Concomitant]
     Active Substance: PANTOPRAZOLE SODIUM
     Indication: SKIN ULCER
     Route: 065
     Dates: start: 20181128

REACTIONS (1)
  - Facial paresis [Recovered/Resolved with Sequelae]

NARRATIVE: CASE EVENT DATE: 20181215
